FAERS Safety Report 5261171-0 (Version None)
Quarter: 2007Q1

REPORT INFORMATION
  Report Type: 
  Country: None (occurrence: None)
  Receive Date: 20070309
  Receipt Date: 20070227
  Transmission Date: 20070707
  Serious: Yes (Hospitalization)
  Sender: FDA-Public Use
  Company Number: BE-PFIZER INC-2007008155

PATIENT
  Sex: Female

DRUGS (6)
  1. SUTENT [Suspect]
     Indication: RENAL CANCER METASTATIC
     Dates: start: 20061110, end: 20070123
  2. ELTHYRONE [Concomitant]
     Route: 048
  3. XANAX [Concomitant]
     Route: 048
  4. SCHERIPROCT [Concomitant]
  5. MORPHINE [Concomitant]
  6. LITICAN [Concomitant]
     Route: 048

REACTIONS (3)
  - ANAL FISSURE [None]
  - CONSTIPATION [None]
  - PROCTALGIA [None]
